FAERS Safety Report 4277982-4 (Version None)
Quarter: 2004Q1

REPORT INFORMATION
  Report Type: 
  Country: None (occurrence: None)
  Receive Date: 20040121
  Receipt Date: 20040107
  Transmission Date: 20041129
  Serious: Yes (Life-Threatening, Hospitalization)
  Sender: FDA-Public Use
  Company Number: 2003-111164-NL

PATIENT
  Age: 73 Year
  Sex: Male

DRUGS (8)
  1. VECURONIUM BROMIDE [Suspect]
     Indication: INDUCTION AND MAINTENANCE OF ANAESTHESIA
     Dosage: 6 MG ONCE/2 MG ONCE; INTRAVENOUS (NOS)
     Route: 042
     Dates: start: 20031120, end: 20031120
  2. PROPOFOL [Suspect]
     Indication: INDUCTION AND MAINTENANCE OF ANAESTHESIA
     Dosage: 100 MG; INTRAVENOUS (NOS)
     Route: 042
     Dates: start: 20031120, end: 20031120
  3. ATROPINE SULFATE [Concomitant]
  4. ... [Concomitant]
  5. HYDROXYZINE [Concomitant]
  6. ... [Concomitant]
  7. MEPIVACAINE HCL [Concomitant]
  8. SEVOFLURANE [Concomitant]

REACTIONS (8)
  - ANAESTHETIC COMPLICATION [None]
  - ANAPHYLACTOID REACTION [None]
  - BLOOD PRESSURE DECREASED [None]
  - ELECTROCARDIOGRAM ST SEGMENT ABNORMAL [None]
  - HEART RATE INCREASED [None]
  - HYPERCAPNIA [None]
  - HYPOVENTILATION [None]
  - VENTRICULAR TACHYCARDIA [None]
